FAERS Safety Report 5676990-6 (Version None)
Quarter: 2008Q1

REPORT INFORMATION
  Report Type: 
  Country: None (occurrence: None)
  Receive Date: 20080324
  Receipt Date: 20080320
  Transmission Date: 20080703
  Serious: Yes (Death, Life-Threatening, Hospitalization)
  Sender: FDA-Public Use
  Company Number: GB-BRISTOL-MYERS SQUIBB COMPANY-13413356

PATIENT
  Age: 63 Year
  Sex: Male

DRUGS (17)
  1. CISPLATIN [Suspect]
     Indication: GASTRIC CANCER
     Route: 041
     Dates: start: 20060524, end: 20060524
  2. FLUOROURACIL [Suspect]
     Indication: GASTRIC CANCER
     Route: 041
     Dates: start: 20060524, end: 20060529
  3. METOCLOPRAMIDE [Concomitant]
     Indication: NAUSEA
     Route: 048
     Dates: start: 20060101
  4. METFORMIN [Concomitant]
     Indication: DIABETES MELLITUS
     Route: 048
  5. GLIMEPIRIDE [Concomitant]
     Indication: DIABETES MELLITUS
     Route: 048
  6. DOXAZOSIN [Concomitant]
     Indication: HYPERTENSION
     Route: 048
  7. ATORVASTATIN CALCIUM [Concomitant]
     Indication: BLOOD CHOLESTEROL
     Route: 048
  8. VALSARTAN [Concomitant]
     Indication: HYPERTENSION
     Route: 048
  9. ATENOLOL [Concomitant]
     Indication: HYPERTENSION
     Route: 048
     Dates: end: 20060605
  10. ORAMORPH SR [Concomitant]
     Indication: PAIN PROPHYLAXIS
     Dates: start: 20060515
  11. OMEPRAZOLE [Concomitant]
     Indication: DYSPEPSIA
     Route: 048
     Dates: end: 20060606
  12. CYCLIZINE [Concomitant]
     Indication: NAUSEA
     Route: 048
     Dates: start: 20060523, end: 20060605
  13. MST [Concomitant]
     Indication: PAIN PROPHYLAXIS
     Route: 048
     Dates: start: 20060515, end: 20060605
  14. MEROPENEM [Concomitant]
     Indication: INFECTION
     Route: 041
     Dates: start: 20060606, end: 20060608
  15. DIAMORPHINE [Concomitant]
     Indication: PAIN PROPHYLAXIS
     Route: 058
     Dates: start: 20060608, end: 20060608
  16. MIDAZOLAM HCL [Concomitant]
     Indication: SEDATION
     Route: 058
     Dates: start: 20060608, end: 20060608
  17. HALOPERIDOL [Concomitant]
     Indication: NAUSEA
     Route: 048
     Dates: start: 20060515, end: 20060605

REACTIONS (3)
  - MALIGNANT NEOPLASM PROGRESSION [None]
  - NEUTROPENIC SEPSIS [None]
  - RENAL FAILURE [None]
